FAERS Safety Report 5378681-8 (Version None)
Quarter: 2007Q3

REPORT INFORMATION
  Report Type: 
  Country: None (occurrence: None)
  Receive Date: 20070702
  Receipt Date: 20070702
  Transmission Date: 20080115
  Serious: Yes (Hospitalization)
  Sender: FDA-Public Use
  Company Number: None

PATIENT
  Age: 43 Year
  Sex: Female
  Weight: 58.0604 kg

DRUGS (1)
  1. ZICAM NASAL GEL MATRIX INITIATIVES [Suspect]
     Indication: NASOPHARYNGITIS
     Dosage: 1 SQUIRT EACH NOSTRIL NASAL
     Route: 045
     Dates: start: 20070519, end: 20070519

REACTIONS (2)
  - ANOSMIA [None]
  - HYPOGEUSIA [None]
